FAERS Safety Report 5743639-3 (Version None)
Quarter: 2008Q2

REPORT INFORMATION
  Report Type: 
  Country: None (occurrence: None)
  Receive Date: 20080519
  Receipt Date: 20080519
  Transmission Date: 20081010
  Serious: Yes (Hospitalization)
  Sender: FDA-Public Use
  Company Number: None

PATIENT
  Sex: Female
  Weight: 53.6 kg

DRUGS (4)
  1. FLUOROURACIL [Suspect]
     Dosage: 2535 MG
     Dates: end: 20060619
  2. LEUCOVORIN CALCIUM [Suspect]
     Dosage: 635 MG
     Dates: end: 20060619
  3. ELOXATIN [Suspect]
     Dosage: 135 MG
     Dates: end: 20060619
  4. DARBEPOETIN ALFA [Concomitant]

REACTIONS (2)
  - BACK PAIN [None]
  - PULMONARY EMBOLISM [None]
